FAERS Safety Report 17439603 (Version 1)
Quarter: 2020Q1

REPORT INFORMATION
  Report Type: Spontaneous
  Country: DE (occurrence: DE)
  Receive Date: 20200220
  Receipt Date: 20200220
  Transmission Date: 20200409
  Serious: Yes (Other)
  Sender: FDA-Public Use
  Company Number: DE-TEVA-2020-DE-1186518

PATIENT
  Age: 52 Year
  Sex: Male

DRUGS (29)
  1. AZATHIOPRINE. [Suspect]
     Active Substance: AZATHIOPRINE
     Indication: INFLAMMATORY BOWEL DISEASE
     Route: 065
  2. CICLOSPORIN [Suspect]
     Active Substance: CYCLOSPORINE
     Indication: PROPHYLAXIS AGAINST GRAFT VERSUS HOST DISEASE
     Route: 065
  3. METHOTREXATE. [Suspect]
     Active Substance: METHOTREXATE
     Indication: PROPHYLAXIS AGAINST GRAFT VERSUS HOST DISEASE
     Route: 065
  4. DOXORUBICIN [Suspect]
     Active Substance: DOXORUBICIN
     Indication: POST TRANSPLANT LYMPHOPROLIFERATIVE DISORDER
  5. CYTARABINE. [Suspect]
     Active Substance: CYTARABINE
     Indication: ACUTE MYELOID LEUKAEMIA
     Dosage: TWO CYCLES
     Route: 065
  6. EBV-DIRECTED T-LYMPHOCYTES [BALTALEUCEL-T] [Suspect]
     Active Substance: BALTALEUCEL-T
     Dosage: 0.5 X 10^4 CD3+ CELLS/KG
     Route: 065
     Dates: start: 201705
  7. CYCLOPHOSPHAMIDE. [Suspect]
     Active Substance: CYCLOPHOSPHAMIDE
     Indication: LYMPHOMA
  8. TREOSULFAN [Suspect]
     Active Substance: TREOSULFAN
     Indication: BONE MARROW CONDITIONING REGIMEN
     Dosage: DOSE: 30 G/M2
     Route: 065
  9. CYCLOPHOSPHAMIDE. [Suspect]
     Active Substance: CYCLOPHOSPHAMIDE
     Indication: DIFFUSE LARGE B-CELL LYMPHOMA STAGE IV
     Dosage: TWO CYCLES OF 14 DAYS EACH
     Route: 065
  10. CYCLOPHOSPHAMIDE. [Suspect]
     Active Substance: CYCLOPHOSPHAMIDE
     Indication: POST TRANSPLANT LYMPHOPROLIFERATIVE DISORDER
  11. RITUXIMAB. [Suspect]
     Active Substance: RITUXIMAB
     Indication: DIFFUSE LARGE B-CELL LYMPHOMA STAGE IV
     Dosage: THREE CYCLES
     Route: 065
  12. VINCRISTINE [Suspect]
     Active Substance: VINCRISTINE
     Indication: DIFFUSE LARGE B-CELL LYMPHOMA STAGE IV
     Dosage: TWO CYCLES OF 14 DAYS EACH
     Route: 065
  13. VINCRISTINE [Suspect]
     Active Substance: VINCRISTINE
     Indication: LYMPHOMA
  14. FLUDARABINE [Suspect]
     Active Substance: FLUDARABINE PHOSPHATE
     Indication: BONE MARROW CONDITIONING REGIMEN
     Route: 065
  15. DOXORUBICIN [Suspect]
     Active Substance: DOXORUBICIN
     Indication: LYMPHOMA
  16. RITUXIMAB. [Suspect]
     Active Substance: RITUXIMAB
     Indication: LYMPHOMA
     Dosage: TWO CYCLES OF R-CHOP CHEMOTHERAPY; 14-DAY CYCLE
     Route: 065
  17. BRENTUXIMAB VEDOTIN [Suspect]
     Active Substance: BRENTUXIMAB VEDOTIN
     Indication: DIFFUSE LARGE B-CELL LYMPHOMA STAGE IV
     Dosage: RECEIVED 12 CYCLES
     Route: 065
     Dates: start: 201610, end: 201711
  18. BRENTUXIMAB VEDOTIN [Suspect]
     Active Substance: BRENTUXIMAB VEDOTIN
     Indication: LYMPHOMA
  19. EBV-DIRECTED T-LYMPHOCYTES [BALTALEUCEL-T] [Suspect]
     Active Substance: BALTALEUCEL-T
     Indication: LYMPHOMA
     Dosage: TWO COURSES AT 0.5 X 10^4 CD3+ CELLS/KG
     Route: 065
     Dates: start: 201612, end: 201701
  20. EBV-DIRECTED T-LYMPHOCYTES [BALTALEUCEL-T] [Suspect]
     Active Substance: BALTALEUCEL-T
     Indication: POST TRANSPLANT LYMPHOPROLIFERATIVE DISORDER
     Dosage: 1 X 10^4 CD3+ CELLS/KG
     Route: 065
     Dates: start: 201703
  21. EBV-DIRECTED T-LYMPHOCYTES [BALTALEUCEL-T] [Suspect]
     Active Substance: BALTALEUCEL-T
     Dosage: 0.5 X 10^4 CD3+ CELLS/KG
     Route: 065
     Dates: start: 201707
  22. VORICONAZOLE. [Concomitant]
     Active Substance: VORICONAZOLE
     Indication: FUNGAL INFECTION
     Route: 065
  23. DOXORUBICIN [Suspect]
     Active Substance: DOXORUBICIN
     Indication: DIFFUSE LARGE B-CELL LYMPHOMA STAGE IV
     Dosage: TWO CYCLES OF 14 DAYS EACH
     Route: 065
  24. VINCRISTINE [Suspect]
     Active Substance: VINCRISTINE
     Indication: POST TRANSPLANT LYMPHOPROLIFERATIVE DISORDER
  25. EBV-DIRECTED T-LYMPHOCYTES [BALTALEUCEL-T] [Suspect]
     Active Substance: BALTALEUCEL-T
     Indication: DIFFUSE LARGE B-CELL LYMPHOMA STAGE IV
     Dosage: 1 X 10^4 CD3+ CELLS/KG
     Route: 065
     Dates: start: 201611
  26. PREDNISOLONE. [Suspect]
     Active Substance: PREDNISOLONE
     Indication: GRAFT VERSUS HOST DISEASE IN SKIN
     Dosage: SHORT-TERM THERAPY
     Route: 065
  27. DAUNORUBICIN [Suspect]
     Active Substance: DAUNORUBICIN
     Indication: ACUTE MYELOID LEUKAEMIA
     Dosage: TWO CYCLES
     Route: 065
  28. ATG-FRESENIUS [Suspect]
     Active Substance: LAPINE T-LYMPHOCYTE IMMUNE GLOBULIN
     Indication: PROPHYLAXIS AGAINST GRAFT VERSUS HOST DISEASE
     Route: 065
  29. BRENTUXIMAB VEDOTIN [Suspect]
     Active Substance: BRENTUXIMAB VEDOTIN
     Indication: POST TRANSPLANT LYMPHOPROLIFERATIVE DISORDER

REACTIONS (4)
  - Drug ineffective [Unknown]
  - Diffuse large B-cell lymphoma stage IV [Recovered/Resolved]
  - Post transplant lymphoproliferative disorder [Recovered/Resolved]
  - Peripheral sensory neuropathy [Unknown]
